FAERS Safety Report 5876506-5 (Version None)
Quarter: 2008Q3

REPORT INFORMATION
  Report Type: 
  Country: None (occurrence: None)
  Receive Date: 20080910
  Receipt Date: 20080901
  Transmission Date: 20090109
  Serious: Yes (Other)
  Sender: FDA-Public Use
  Company Number: B0528069A

PATIENT
  Age: 58 Year
  Sex: Male
  Weight: 100 kg

DRUGS (1)
  1. MALARONE [Suspect]
     Indication: MALARIA PROPHYLAXIS
     Dosage: 1TAB IN THE MORNING
     Route: 048
     Dates: start: 20080401, end: 20080401

REACTIONS (7)
  - ASTHENIA [None]
  - DELIRIUM [None]
  - HYPERHIDROSIS [None]
  - MALARIA [None]
  - PYREXIA [None]
  - TREATMENT FAILURE [None]
  - WEIGHT DECREASED [None]
